FAERS Safety Report 10473824 (Version 1)
Quarter: 2014Q3

REPORT INFORMATION
  Report Type: Spontaneous
  Country: SA (occurrence: SA)
  Receive Date: 20140924
  Receipt Date: 20140924
  Transmission Date: 20150326
  Serious: Yes (Other)
  Sender: FDA-Public Use
  Company Number: SA-BAYER-2014-135298

PATIENT
  Age: 21 Year
  Sex: Male

DRUGS (6)
  1. METHOTREXATE [Interacting]
     Active Substance: METHOTREXATE
     Indication: CHEMOTHERAPY
     Dosage: 12 G/M2 HIGH DOSE
  2. SULFAMETHOXAZOLE-TRIMETHOPRIM (SMZ) [Suspect]
     Active Substance: SULFAMETHOXAZOLE\TRIMETHOPRIM
     Indication: URINARY TRACT INFECTION
     Dosage: 160/800 MG
  3. TRAMADOL [Concomitant]
     Active Substance: TRAMADOL
     Indication: BONE PAIN
     Dosage: 100 MG AS NEEDED
  4. PANTOPRAZOLE [Suspect]
     Active Substance: PANTOPRAZOLE SODIUM
     Indication: PEPTIC ULCER
     Dosage: 40 MG, UNK
  5. LEUCOVORIN [Concomitant]
     Active Substance: LEUCOVORIN
     Indication: CHEMOTHERAPY
  6. ACETYLSALICYLIC ACID (} 100 MG) [Suspect]
     Active Substance: ASPIRIN
     Indication: TOOTHACHE
     Dosage: 500 MG, UNK

REACTIONS (3)
  - Pleural effusion [None]
  - Drug interaction [None]
  - Toxicity to various agents [None]
